FAERS Safety Report 13623056 (Version 2)
Quarter: 2017Q2

REPORT INFORMATION
  Report Type: Report from Study
  Country: JP (occurrence: JP)
  Receive Date: 20170607
  Receipt Date: 20170630
  Transmission Date: 20170830
  Serious: Yes (Death, Other)
  Sender: FDA-Public Use
  Company Number: JP-UCBSA-2017021876

PATIENT
  Age: 65 Year
  Sex: Male

DRUGS (18)
  1. AMLODIPINE [Concomitant]
     Active Substance: AMLODIPINE BESYLATE
     Indication: HYPERTENSION
     Dosage: 2.5 MG, ONCE DAILY (QD)
     Route: 048
     Dates: start: 20170429, end: 20170507
  2. TENORMIN [Concomitant]
     Active Substance: ATENOLOL
     Indication: TACHYCARDIA
     Dosage: 50 MG, ONCE DAILY (QD)
     Route: 048
     Dates: start: 20170427, end: 20170507
  3. EXCEGRAN [Concomitant]
     Active Substance: ZONISAMIDE
     Indication: PARTIAL SEIZURES WITH SECONDARY GENERALISATION
     Dosage: 200 MG,
     Route: 048
     Dates: start: 20170429, end: 20170502
  4. LEVETIRACETAM. [Suspect]
     Active Substance: LEVETIRACETAM
     Indication: SIMPLE PARTIAL SEIZURES
     Dosage: 1000 MG, 2X/DAY (BID)
     Route: 048
     Dates: start: 20170427
  5. TEGRETOL [Concomitant]
     Active Substance: CARBAMAZEPINE
     Indication: PARTIAL SEIZURES WITH SECONDARY GENERALISATION
     Route: 048
     Dates: start: 20170429, end: 20170507
  6. LEVETIRACETAM. [Suspect]
     Active Substance: LEVETIRACETAM
     Indication: PARTIAL SEIZURES WITH SECONDARY GENERALISATION
     Dosage: 1000 MG, 2X/DAY (BID)
     Route: 048
     Dates: start: 201703, end: 20170423
  7. LEVETIRACETAM. [Suspect]
     Active Substance: LEVETIRACETAM
     Indication: FOCAL DYSCOGNITIVE SEIZURES
  8. FOSPHENYTOIN SODIUM. [Concomitant]
     Active Substance: FOSPHENYTOIN SODIUM
     Dosage: 1125 MG, ONCE DAILY (QD)
     Route: 042
     Dates: start: 20170428, end: 20170428
  9. ASPARA K [Concomitant]
     Active Substance: POTASSIUM ASPARTATE
     Dosage: 1800 MG
     Route: 048
     Dates: start: 20170426, end: 20170501
  10. SULBACILLIN [Concomitant]
     Active Substance: AMPICILLIN SODIUM\SULBACTAM SODIUM
     Dosage: 3 G, 4X/DAY (QID)
     Route: 042
     Dates: start: 20170506, end: 20170507
  11. SULBACILLIN [Concomitant]
     Active Substance: AMPICILLIN SODIUM\SULBACTAM SODIUM
     Indication: PRODUCT USED FOR UNKNOWN INDICATION
     Dosage: 3 G, 4X/DAY (QID)
     Route: 042
     Dates: start: 20170426, end: 20170503
  12. VITAMEDIN INTRAVENOUS [Concomitant]
     Active Substance: CYANOCOBALAMIN\PYRIDOXINE HYDROCHLORIDE\THIAMINE
     Indication: VITAMIN SUPPLEMENTATION
     Dosage: 1 DF, ONCE DAILY (QD)
     Route: 042
     Dates: start: 20170426, end: 20170426
  13. LANSOPRAZOLE. [Concomitant]
     Active Substance: LANSOPRAZOLE
     Indication: PRODUCT USED FOR UNKNOWN INDICATION
     Dosage: 90 MG, ONCE DAILY (QD)
     Route: 048
     Dates: start: 20170426, end: 20170507
  14. FOSPHENYTOIN SODIUM. [Concomitant]
     Active Substance: FOSPHENYTOIN SODIUM
     Dosage: 375 MG, ONCE DAILY (QD)
     Route: 042
     Dates: start: 20170429, end: 20170505
  15. HORIZON [Concomitant]
     Active Substance: DIAZEPAM
     Indication: PARTIAL SEIZURES WITH SECONDARY GENERALISATION
     Dosage: 20 MG, ONCE DAILY (QD)
     Route: 042
     Dates: start: 20170425, end: 20170425
  16. VASOLAN [Concomitant]
     Active Substance: VERAPAMIL HYDROCHLORIDE
     Indication: PRODUCT USED FOR UNKNOWN INDICATION
     Dosage: 5 UNK, ONCE DAILY (QD)
     Route: 042
     Dates: start: 20170426, end: 20170426
  17. E KEPPRA [Concomitant]
     Active Substance: LEVETIRACETAM
     Indication: PRODUCT USED FOR UNKNOWN INDICATION
     Dosage: UNK
     Route: 042
  18. FOSPHENYTOIN SODIUM. [Concomitant]
     Active Substance: FOSPHENYTOIN SODIUM
     Indication: PARTIAL SEIZURES WITH SECONDARY GENERALISATION
     Dosage: 1125 MG, ONCE DAILY (QD)
     Route: 042
     Dates: start: 20170425, end: 20170425

REACTIONS (1)
  - Cerebral infarction [Fatal]

NARRATIVE: CASE EVENT DATE: 20170507
